FAERS Safety Report 26134526 (Version 1)
Quarter: 2025Q4

REPORT INFORMATION
  Report Type: Spontaneous
  Country: EU (occurrence: EU)
  Receive Date: 20251209
  Receipt Date: 20251209
  Transmission Date: 20260118
  Serious: Yes (Hospitalization)
  Sender: MERCK SHARP & DOHME LLC
  Company Number: None

PATIENT
  Age: 76 Year
  Sex: Female
  Weight: 66.5 kg

DRUGS (1)
  1. TEMOZOLOMIDE [Suspect]
     Active Substance: TEMOZOLOMIDE
     Indication: Astrocytoma
     Dosage: CURE NO. 1, THAT IS 135 MG/DAY
     Route: 048
     Dates: start: 20250901, end: 20251006

REACTIONS (3)
  - Thrombocytopenia [Not Recovered/Not Resolved]
  - Anaemia [Not Recovered/Not Resolved]
  - Agranulocytosis [Recovered/Resolved with Sequelae]

NARRATIVE: CASE EVENT DATE: 20250929
